FAERS Safety Report 15276050 (Version 1)
Quarter: 2018Q3

REPORT INFORMATION
  Report Type: Spontaneous
  Country: US (occurrence: US)
  Receive Date: 20180814
  Receipt Date: 20180814
  Transmission Date: 20181010
  Serious: Yes (Other)
  Sender: FDA-Public Use
  Company Number: US-ASTRAZENECA-2018SF00522

PATIENT

DRUGS (2)
  1. ONGLYZA [Suspect]
     Active Substance: SAXAGLIPTIN HYDROCHLORIDE
     Indication: BLOOD GLUCOSE DECREASED
     Route: 048
     Dates: start: 201405, end: 201702
  2. KOMBIGLYZE XR [Suspect]
     Active Substance: METFORMIN HYDROCHLORIDE\SAXAGLIPTIN HYDROCHLORIDE
     Indication: BLOOD GLUCOSE DECREASED
     Route: 048
     Dates: start: 201405, end: 201702

REACTIONS (3)
  - Cardiovascular disorder [Unknown]
  - Cardiac failure congestive [Unknown]
  - Cardiac failure [Unknown]
